FAERS Safety Report 5906270-2 (Version None)
Quarter: 2008Q4

REPORT INFORMATION
  Report Type: 
  Country: None (occurrence: None)
  Receive Date: 20081002
  Receipt Date: 20080924
  Transmission Date: 20090506
  Serious: No
  Sender: FDA-Public Use
  Company Number: BR-ROCHE-588463

PATIENT
  Age: 27 Year
  Sex: Female

DRUGS (2)
  1. ROACUTAN [Suspect]
     Indication: ACNE
     Route: 048
     Dates: start: 20080808, end: 20080822
  2. LEVEL [Concomitant]
     Indication: CONTRACEPTION
     Route: 048
     Dates: start: 20080715

REACTIONS (2)
  - NO ADVERSE EVENT [None]
  - PREGNANCY [None]
